FAERS Safety Report 4372336-4 (Version None)
Quarter: 2004Q2

REPORT INFORMATION
  Report Type: 
  Country: None (occurrence: None)
  Receive Date: 20040526
  Receipt Date: 20020402
  Transmission Date: 20050107
  Serious: Yes (Hospitalization)
  Sender: FDA-Public Use
  Company Number: 2002097870FI

PATIENT
  Age: 54 Year
  Sex: Female

DRUGS (7)
  1. CAMPTOSAR [Suspect]
     Indication: COLON CANCER
     Dosage: 310 MG, CYCLIC, IV
     Route: 042
     Dates: start: 20020227, end: 20020228
  2. FLUOROURACIL [Suspect]
     Indication: COLON CANCER
     Dosage: SEE IMAGE
     Route: 042
     Dates: start: 20020227, end: 20020228
  3. CALCIUM FOLINATE (CALCIUM FOLINATE) [Suspect]
     Indication: COLON CANCER
     Dosage: 345 MG , CYCLIC, IV
     Route: 042
     Dates: start: 20020227, end: 20020228
  4. ATROPINE SULFATE [Concomitant]
  5. KYTRIL [Concomitant]
  6. DECADRON [Concomitant]
  7. RANIMEX [Concomitant]

REACTIONS (5)
  - DIARRHOEA [None]
  - INTESTINAL OBSTRUCTION [None]
  - MUCOSAL INFLAMMATION [None]
  - NEUTROPENIC SEPSIS [None]
  - VOMITING [None]
